FAERS Safety Report 5960834-9 (Version None)
Quarter: 2008Q4

REPORT INFORMATION
  Report Type: 
  Country: None (occurrence: None)
  Receive Date: 20081112
  Receipt Date: 20080618
  Transmission Date: 20090506
  Serious: Yes (Other)
  Sender: FDA-Public Use
  Company Number: 2008S1000211

PATIENT
  Sex: Male

DRUGS (5)
  1. CUBICIN [Suspect]
     Indication: ABSCESS BACTERIAL
     Dosage: 4 MG/KG; Q24H; IV
     Route: 042
  2. VANCOMYCIN [Concomitant]
  3. LINEZOLID [Concomitant]
  4. METRONIDAZOLE [Concomitant]
  5. LOTENSIN /00909102/ [Concomitant]

REACTIONS (1)
  - RENAL FAILURE [None]
